FAERS Safety Report 16455925 (Version 1)
Quarter: 2019Q2

REPORT INFORMATION
  Report Type: Spontaneous
  Country: US (occurrence: US)
  Receive Date: 20190509
  Receipt Date: 20190509
  Transmission Date: 20190711
  Serious: No
  Sender: FDA-Public Use
  Company Number: None

PATIENT
  Age: 46 Year
  Sex: Female

DRUGS (1)
  1. TRACLEER [Suspect]
     Active Substance: BOSENTAN
     Route: 048
     Dates: start: 20151109

REACTIONS (6)
  - Pain [None]
  - Incarcerated umbilical hernia [None]
  - Back pain [None]
  - Chills [None]
  - Abdominal pain [None]
  - Muscle strain [None]

NARRATIVE: CASE EVENT DATE: 20190415
